FAERS Safety Report 10074334 (Version 1)
Quarter: 2014Q2

REPORT INFORMATION
  Report Type: Spontaneous
  Country: US (occurrence: US)
  Receive Date: 20140411
  Receipt Date: 20140411
  Transmission Date: 20141212
  Serious: No
  Sender: FDA-Public Use
  Company Number: US-SANOFI-AVENTIS-2013SA051873

PATIENT
  Age: 70 Year
  Sex: Female

DRUGS (2)
  1. ALLEGRA D [Suspect]
     Indication: HYPERSENSITIVITY
     Dosage: PRODUCT STARTED ONE WEEK AGO, FREQUENCY - QAM, DOSAGE - 60/120 MG
     Route: 048
     Dates: end: 20130520
  2. ALLEGRA [Suspect]
     Indication: HYPERSENSITIVITY
     Dosage: PRODUCT STARTED ONE WEEK AGO.
     Route: 048
     Dates: end: 20130520

REACTIONS (1)
  - Heart rate increased [Not Recovered/Not Resolved]
